FAERS Safety Report 19499277 (Version 1)
Quarter: 2021Q3

REPORT INFORMATION
  Report Type: Report from Study
  Country: FR (occurrence: FR)
  Receive Date: 20210706
  Receipt Date: 20210706
  Transmission Date: 20211014
  Serious: Yes (Hospitalization)
  Sender: FDA-Public Use
  Company Number: FR-TAKEDA-FR201900579

PATIENT
  Age: 62 Year
  Sex: Female
  Weight: 58 kg

DRUGS (47)
  1. TEDUGLUTIDE [Suspect]
     Active Substance: TEDUGLUTIDE
     Dosage: 2.6 MG (0.05 MG/KG), 7 DOSE PER WEEK
     Route: 065
     Dates: start: 20161108, end: 20161206
  2. TEDUGLUTIDE [Suspect]
     Active Substance: TEDUGLUTIDE
     Dosage: 2.6 MG (0.05 MG/KG), 7 DOSE PER WEEK
     Route: 065
     Dates: start: 20161108, end: 20161206
  3. TEDUGLUTIDE [Suspect]
     Active Substance: TEDUGLUTIDE
     Dosage: 2.8 MG (0.05 MG/KG), 7 DOSE PER WEEK
     Route: 065
     Dates: start: 20170214, end: 20170220
  4. TEDUGLUTIDE [Suspect]
     Active Substance: TEDUGLUTIDE
     Dosage: 2.8 MG (0.05 MG/KG), 7 DOSE PER WEEK
     Route: 065
     Dates: start: 20160825, end: 20160908
  5. TEDUGLUTIDE [Suspect]
     Active Substance: TEDUGLUTIDE
     Dosage: 2.8 MG (0.05 MG/KG), QD
     Route: 065
     Dates: start: 20170412, end: 20181129
  6. TEDUGLUTIDE [Suspect]
     Active Substance: TEDUGLUTIDE
     Dosage: 2.4 MG (0.05 MG/KG), QD
     Route: 065
     Dates: start: 20181130
  7. COUMADINE [Concomitant]
     Active Substance: WARFARIN SODIUM
     Indication: THROMBOSIS PROPHYLAXIS
  8. CALCIUM CARBONATE. [Concomitant]
     Active Substance: CALCIUM CARBONATE
     Indication: SHORT-BOWEL SYNDROME
     Dosage: 500 MILLIGRAM, QD
     Route: 048
     Dates: start: 20200214
  9. COLECALCIFEROL [Concomitant]
     Active Substance: CHOLECALCIFEROL
     Indication: SHORT-BOWEL SYNDROME
     Dosage: 100000 INTERNATIONAL UNIT, MONTHLY
     Route: 048
     Dates: start: 20200214
  10. TEDUGLUTIDE [Suspect]
     Active Substance: TEDUGLUTIDE
     Indication: SHORT-BOWEL SYNDROME
     Dosage: 3 MG (0.05 MG/KG), 7 DOSES PER WEEK
     Route: 065
     Dates: start: 20160404, end: 20160824
  11. TEDUGLUTIDE [Suspect]
     Active Substance: TEDUGLUTIDE
     Dosage: 2.8 MG (0.05 MG/KG), 7 DOSE PER WEEK
     Route: 065
     Dates: start: 20160825, end: 20160908
  12. TEDUGLUTIDE [Suspect]
     Active Substance: TEDUGLUTIDE
     Dosage: 2.8 MG (0.05 MG/KG), 7 DOSE PER WEEK
     Route: 065
     Dates: start: 20160915, end: 20161107
  13. TEDUGLUTIDE [Suspect]
     Active Substance: TEDUGLUTIDE
     Dosage: 2.6 MG (0.05 MG/KG), 7 DOSE PER WEEK
     Route: 065
     Dates: start: 20170303, end: 20170411
  14. TEDUGLUTIDE [Suspect]
     Active Substance: TEDUGLUTIDE
     Dosage: 2.8 MG (0.05 MG/KG), QD
     Route: 065
     Dates: start: 20170412, end: 20181129
  15. TEDUGLUTIDE [Suspect]
     Active Substance: TEDUGLUTIDE
     Indication: SHORT-BOWEL SYNDROME
     Dosage: 3 MG (0.05 MG/KG), 7 DOSES PER WEEK
     Route: 065
     Dates: start: 20160404, end: 20160824
  16. TEDUGLUTIDE [Suspect]
     Active Substance: TEDUGLUTIDE
     Dosage: 2.8 MG (0.05 MG/KG), 7 DOSE PER WEEK
     Route: 065
     Dates: start: 20160825, end: 20160908
  17. TEDUGLUTIDE [Suspect]
     Active Substance: TEDUGLUTIDE
     Dosage: 2.8 MG (0.05 MG/KG), 7 DOSE PER WEEK
     Route: 065
     Dates: start: 20160915, end: 20161107
  18. TEDUGLUTIDE [Suspect]
     Active Substance: TEDUGLUTIDE
     Dosage: 2.6 MG (0.05 MG/KG), 7 DOSE PER WEEK
     Route: 065
     Dates: start: 20161108, end: 20161206
  19. TEDUGLUTIDE [Suspect]
     Active Substance: TEDUGLUTIDE
     Dosage: 2.6 MG (0.05 MG/KG), 7 DOSE PER WEEK
     Route: 065
     Dates: start: 20170303, end: 20170411
  20. TEDUGLUTIDE [Suspect]
     Active Substance: TEDUGLUTIDE
     Dosage: 2.8 MG (0.05 MG/KG), QD
     Route: 065
     Dates: start: 20170412, end: 20181129
  21. TEDUGLUTIDE [Suspect]
     Active Substance: TEDUGLUTIDE
     Dosage: 2.6 MG (0.05 MG/KG), 7 DOSE PER WEEK
     Route: 065
     Dates: start: 20160909, end: 20160914
  22. TEDUGLUTIDE [Suspect]
     Active Substance: TEDUGLUTIDE
     Dosage: 2.8 MG (0.05 MG/KG), 7 DOSE PER WEEK
     Route: 065
     Dates: start: 20160915, end: 20161107
  23. TEDUGLUTIDE [Suspect]
     Active Substance: TEDUGLUTIDE
     Dosage: 2.8 MG (0.05 MG/KG), 7 DOSE PER WEEK
     Route: 065
     Dates: start: 20170214, end: 20170220
  24. TEDUGLUTIDE [Suspect]
     Active Substance: TEDUGLUTIDE
     Dosage: 2.8 MG (0.05 MG/KG), 7 DOSE PER WEEK
     Route: 065
     Dates: start: 20170412
  25. TEDUGLUTIDE [Suspect]
     Active Substance: TEDUGLUTIDE
     Dosage: 2.8 MG (0.05 MG/KG), 7 DOSE PER WEEK
     Route: 065
     Dates: start: 20170412
  26. MAGNESIUM [Concomitant]
     Active Substance: MAGNESIUM
     Indication: SUPPLEMENTATION THERAPY
     Dosage: 15000 MILLIGRAM, CONTINUOUS RUNNING
     Route: 042
     Dates: start: 201911
  27. VITAMIN B12 [Concomitant]
     Active Substance: CYANOCOBALAMIN
     Indication: SUPPLEMENTATION THERAPY
  28. COUMADINE [Concomitant]
     Active Substance: WARFARIN SODIUM
     Indication: VENOUS THROMBOSIS
     Dosage: 1.50 MILLIGRAM, QD
     Route: 048
     Dates: start: 20191125
  29. TEDUGLUTIDE [Suspect]
     Active Substance: TEDUGLUTIDE
     Dosage: 2.6 MG (0.05 MG/KG), 7 DOSE PER WEEK
     Route: 065
     Dates: start: 20160909, end: 20160914
  30. TEDUGLUTIDE [Suspect]
     Active Substance: TEDUGLUTIDE
     Dosage: 2.8 MG (0.05 MG/KG), 7 DOSE PER WEEK
     Route: 065
     Dates: start: 20160915, end: 20161107
  31. TEDUGLUTIDE [Suspect]
     Active Substance: TEDUGLUTIDE
     Dosage: 2.6 MG (0.05 MG/KG), 7 DOSE PER WEEK
     Route: 065
     Dates: start: 20161108, end: 20161206
  32. TEDUGLUTIDE [Suspect]
     Active Substance: TEDUGLUTIDE
     Dosage: 2.8 MG (0.05 MG/KG), 7 DOSE PER WEEK
     Route: 065
     Dates: start: 20170214, end: 20170220
  33. TEDUGLUTIDE [Suspect]
     Active Substance: TEDUGLUTIDE
     Dosage: 2.6 MG (0.05 MG/KG), 7 DOSE PER WEEK
     Route: 065
     Dates: start: 20170303, end: 20170411
  34. TEDUGLUTIDE [Suspect]
     Active Substance: TEDUGLUTIDE
     Dosage: 2.8 MG (0.05 MG/KG), 7 DOSE PER WEEK
     Route: 065
     Dates: start: 20170412
  35. TEDUGLUTIDE [Suspect]
     Active Substance: TEDUGLUTIDE
     Dosage: 2.8 MG (0.05 MG/KG), 7 DOSE PER WEEK
     Route: 065
     Dates: start: 20170412
  36. TEDUGLUTIDE [Suspect]
     Active Substance: TEDUGLUTIDE
     Dosage: 2.8 MG (0.05 MG/KG), 7 DOSE PER WEEK
     Route: 065
     Dates: start: 20170214, end: 20170220
  37. TEDUGLUTIDE [Suspect]
     Active Substance: TEDUGLUTIDE
     Dosage: 2.8 MG (0.05 MG/KG), QD
     Route: 065
     Dates: start: 20170412, end: 20181129
  38. TEDUGLUTIDE [Suspect]
     Active Substance: TEDUGLUTIDE
     Dosage: 2.4 MG (0.05 MG/KG), QD
     Route: 065
     Dates: start: 20181130
  39. MAGNESIUM [Concomitant]
     Active Substance: MAGNESIUM
     Indication: SHORT-BOWEL SYNDROME
  40. TEDUGLUTIDE [Suspect]
     Active Substance: TEDUGLUTIDE
     Indication: SHORT-BOWEL SYNDROME
     Dosage: 3 MG (0.05 MG/KG), 7 DOSES PER WEEK
     Route: 065
     Dates: start: 20160404, end: 20160824
  41. TEDUGLUTIDE [Suspect]
     Active Substance: TEDUGLUTIDE
     Dosage: 2.6 MG (0.05 MG/KG), 7 DOSE PER WEEK
     Route: 065
     Dates: start: 20160909, end: 20160914
  42. TEDUGLUTIDE [Suspect]
     Active Substance: TEDUGLUTIDE
     Dosage: 2.6 MG (0.05 MG/KG), 7 DOSE PER WEEK
     Route: 065
     Dates: start: 20170303, end: 20170411
  43. TEDUGLUTIDE [Suspect]
     Active Substance: TEDUGLUTIDE
     Dosage: 2.4 MG (0.05 MG/KG), QD
     Route: 065
     Dates: start: 20181130
  44. TEDUGLUTIDE [Suspect]
     Active Substance: TEDUGLUTIDE
     Dosage: 2.4 MG (0.05 MG/KG), QD
     Route: 065
     Dates: start: 20181130
  45. TEDUGLUTIDE [Suspect]
     Active Substance: TEDUGLUTIDE
     Indication: SHORT-BOWEL SYNDROME
     Dosage: 3 MG (0.05 MG/KG), 7 DOSES PER WEEK
     Route: 065
     Dates: start: 20160404, end: 20160824
  46. TEDUGLUTIDE [Suspect]
     Active Substance: TEDUGLUTIDE
     Dosage: 2.8 MG (0.05 MG/KG), 7 DOSE PER WEEK
     Route: 065
     Dates: start: 20160825, end: 20160908
  47. TEDUGLUTIDE [Suspect]
     Active Substance: TEDUGLUTIDE
     Dosage: 2.6 MG (0.05 MG/KG), 7 DOSE PER WEEK
     Route: 065
     Dates: start: 20160909, end: 20160914

REACTIONS (1)
  - Weight decreased [Not Recovered/Not Resolved]

NARRATIVE: CASE EVENT DATE: 20180921
